FAERS Safety Report 21787143 (Version 1)
Quarter: 2022Q4

REPORT INFORMATION
  Report Type: Spontaneous
  Country: JP (occurrence: JP)
  Receive Date: 20221228
  Receipt Date: 20221228
  Transmission Date: 20230113
  Serious: Yes (Other)
  Sender: FDA-Public Use
  Company Number: JP-BAYER-2022A168260

PATIENT
  Age: 86 Year
  Sex: Male
  Weight: 55 kg

DRUGS (4)
  1. RIVAROXABAN [Suspect]
     Active Substance: RIVAROXABAN
     Indication: Embolism venous
     Dosage: 15 MG, BID
     Route: 048
     Dates: start: 202212, end: 202212
  2. ASPIRIN [Suspect]
     Active Substance: ASPIRIN
     Indication: Essential thrombocythaemia
     Dosage: 1 DF, QD
     Route: 048
  3. HYDREA [Concomitant]
     Active Substance: HYDROXYUREA
     Indication: Essential thrombocythaemia
  4. AGRYLIN [Concomitant]
     Active Substance: ANAGRELIDE HYDROCHLORIDE
     Indication: Essential thrombocythaemia

REACTIONS (5)
  - Embolism venous [Unknown]
  - Epistaxis [Recovered/Resolved]
  - Off label use [Unknown]
  - Contusion [Unknown]
  - Peripheral swelling [Unknown]

NARRATIVE: CASE EVENT DATE: 20221201
